FAERS Safety Report 7069250-2 (Version None)
Quarter: 2010Q4

REPORT INFORMATION
  Report Type: 
  Country: None (occurrence: None)
  Receive Date: 20101020
  Receipt Date: 20101007
  Transmission Date: 20110411
  Serious: Yes (Hospitalization, Other)
  Sender: FDA-Public Use
  Company Number: TUK2010A00278

PATIENT
  Age: 83 Year
  Sex: Female

DRUGS (7)
  1. ACTOS [Suspect]
     Indication: DIABETES MELLITUS
     Dosage: (30 MG) ORAL
     Route: 048
  2. ASPIRIN [Concomitant]
  3. BISOPROLOL FUMARATE [Concomitant]
  4. CARBIMAZOLE (CARBIMAZOLE) [Concomitant]
  5. GLICLAZIDE (GLICLAZIDE) [Concomitant]
  6. ACETAMINOPHEN [Concomitant]
  7. METFORMIN HCL [Concomitant]

REACTIONS (1)
  - ACUTE MYOCARDIAL INFARCTION [None]
